FAERS Safety Report 6679175-X (Version None)
Quarter: 2010Q2

REPORT INFORMATION
  Report Type: 
  Country: None (occurrence: None)
  Receive Date: 20100409
  Receipt Date: 20100401
  Transmission Date: 20101027
  Serious: Yes (Other)
  Sender: FDA-Public Use
  Company Number: 2010SP019890

PATIENT
  Age: 41 Year
  Sex: Female

DRUGS (4)
  1. CLARITIN [Suspect]
     Indication: HYPERSENSITIVITY
     Dosage: PO
     Route: 048
  2. SLEEPING PILL [Concomitant]
  3. CLARITIN-D [Concomitant]
  4. LORATADINE AND PSEUDOEPHEDRINE SULFATE [Concomitant]

REACTIONS (3)
  - INFECTION SUSCEPTIBILITY INCREASED [None]
  - RETINAL INJURY [None]
  - VIRAL INFECTION [None]
